FAERS Safety Report 8861350 (Version 2)
Quarter: 2013Q1

REPORT INFORMATION
  Report Type: Spontaneous
  Country: US (occurrence: None)
  Receive Date: 20121022
  Receipt Date: 20121031
  Transmission Date: 20140127
  Serious: Yes (Other)
  Sender: FDA-Public Use
  Company Number: 2012AP003391

PATIENT
  Age: 59 Year
  Sex: Female

DRUGS (1)
  1. ALENDRONATE SODIUM TABLETS [Suspect]
     Indication: OSTEOPOROSIS

REACTIONS (6)
  - Femur fracture [None]
  - Femur fracture [None]
  - Fracture nonunion [None]
  - Bone disorder [None]
  - Bone pain [None]
  - Fall [None]
